FAERS Safety Report 6962453-4 (Version None)
Quarter: 2010Q3

REPORT INFORMATION
  Report Type: 
  Country: None (occurrence: None)
  Receive Date: 20100823
  Receipt Date: 20100524
  Transmission Date: 20110219
  Serious: No
  Sender: FDA-Public Use
  Company Number: 014022

PATIENT
  Sex: Female

DRUGS (1)
  1. CIMZIA [Suspect]
     Indication: CROHN'S DISEASE
     Dosage: (DOSE SUBCUTANEOUS)
     Route: 058

REACTIONS (4)
  - DRUG EFFECT DECREASED [None]
  - DRUG TOLERANCE [None]
  - ERUCTATION [None]
  - FREQUENT BOWEL MOVEMENTS [None]
